FAERS Safety Report 9664048 (Version 1)
Quarter: 2013Q4

REPORT INFORMATION
  Report Type: Spontaneous
  Country: GB (occurrence: GB)
  Receive Date: 20131101
  Receipt Date: 20131101
  Transmission Date: 20140711
  Serious: Yes (Other)
  Sender: FDA-Public Use
  Company Number: GB-PFIZER INC-2013311223

PATIENT
  Age: 75 Year
  Sex: Female
  Weight: 68 kg

DRUGS (3)
  1. GABAPENTIN [Suspect]
     Dosage: UNK
  2. CO-CODAMOL [Concomitant]
     Indication: BACK PAIN
     Dosage: TWO-FOUR 30/500MG TABLETS DAILY
     Route: 048
     Dates: start: 20081205, end: 20121015
  3. DOXAZOSIN [Concomitant]
     Indication: BLOOD PRESSURE INCREASED
     Dosage: 1 DF, 1X/DAY, CAN^T REMEMBER STRENGTH
     Dates: start: 20081127, end: 20110221

REACTIONS (6)
  - Dementia [Recovered/Resolved]
  - Depression [Recovered/Resolved]
  - Mood swings [Recovered/Resolved]
  - Irritability [Recovered/Resolved]
  - Amnesia [Recovered/Resolved]
  - Mood altered [Recovered/Resolved]
